FAERS Safety Report 11618694 (Version 4)
Quarter: 2018Q2

REPORT INFORMATION
  Report Type: Report from Study
  Country: US (occurrence: US)
  Receive Date: 20151012
  Receipt Date: 20180414
  Transmission Date: 20180711
  Serious: Yes (Hospitalization)
  Sender: FDA-Public Use
  Company Number: US-ROCHE-1642825

PATIENT
  Age: 90 Year
  Sex: Male
  Weight: 86.9 kg

DRUGS (15)
  1. GLUCOSAMINE SULFATE [Concomitant]
     Active Substance: GLUCOSAMINE SULFATE
     Route: 048
     Dates: start: 20120104, end: 20160906
  2. NIASPAN [Concomitant]
     Active Substance: NIACIN
     Route: 048
     Dates: start: 20120104
  3. FISH OIL [Concomitant]
     Active Substance: FISH OIL
     Dosage: CONCENTRATE
     Route: 048
     Dates: start: 20120104
  4. COMPAZINE [Concomitant]
     Active Substance: PROCHLORPERAZINE MALEATE
     Indication: NAUSEA
     Route: 048
     Dates: start: 20150928
  5. VITAMIN E [Concomitant]
     Active Substance: .ALPHA.-TOCOPHEROL
     Route: 048
     Dates: start: 20120104
  6. ZOLPIDEM TARTRATE. [Concomitant]
     Active Substance: ZOLPIDEM TARTRATE
     Route: 048
     Dates: start: 20120104
  7. BACTRIM DS [Concomitant]
     Active Substance: SULFAMETHOXAZOLE\TRIMETHOPRIM
     Indication: INFECTION PROPHYLAXIS
     Dosage: STRENGHT: 800/160MG, NOT TO BE TAKEN ON BENDAMUSTINE INFUSION DAYS.
     Route: 048
     Dates: start: 20150928
  8. ZOFRAN [Concomitant]
     Active Substance: ONDANSETRON HYDROCHLORIDE
     Route: 050
     Dates: start: 20150928
  9. BENDAMUSTINE [Suspect]
     Active Substance: BENDAMUSTINE
     Indication: CHRONIC LYMPHOCYTIC LEUKAEMIA
     Dosage: MOST RECENT DOSE PRIOR TO SAE: 02/OCT/2015
     Route: 042
     Dates: start: 20151001
  10. DIPHENHYDRAMINE. [Concomitant]
     Active Substance: DIPHENHYDRAMINE
     Dosage: SLEEP AID
     Route: 065
     Dates: start: 20150701
  11. OBINUTUZUMAB. [Suspect]
     Active Substance: OBINUTUZUMAB
     Indication: CHRONIC LYMPHOCYTIC LEUKAEMIA
     Dosage: MOST RECENT DOSE PRIOR TO SAE 900 MG ON 01/OCT/2015
     Route: 042
     Dates: start: 20150930
  12. ALLOPURINOL. [Concomitant]
     Active Substance: ALLOPURINOL
     Dosage: 1 TABLET DAILY EXCEPT ON THE DAYS THE PATIENT RECEIVED BENDAMUSTINE INFUSION
     Route: 048
     Dates: start: 20150928
  13. NIACIN. [Concomitant]
     Active Substance: NIACIN
     Route: 048
     Dates: start: 20150505
  14. LEVOTHYROXINE SODIUM. [Concomitant]
     Active Substance: LEVOTHYROXINE SODIUM
     Route: 048
     Dates: start: 20120104
  15. VITAMIN B COMPLEX [Concomitant]
     Active Substance: CYANOCOBALAMIN\DEXPANTHENOL\NIACINAMIDE\PYRIDOXINE HYDROCHLORIDE\RIBOFLAVIN 5^-PHOSPHATE SODIUM\THIAMINE HYDROCHLORIDE\VITAMIN B COMPLEX
     Dosage: DOSE: UNKNOWN
     Route: 048
     Dates: start: 20120104

REACTIONS (1)
  - Tumour lysis syndrome [Recovered/Resolved]

NARRATIVE: CASE EVENT DATE: 20151001
